FAERS Safety Report 21736546 (Version 1)
Quarter: 2022Q4

REPORT INFORMATION
  Report Type: Spontaneous
  Country: US (occurrence: US)
  Receive Date: 20221215
  Receipt Date: 20221215
  Transmission Date: 20230113
  Serious: No
  Sender: FDA-Public Use
  Company Number: US-JNJFOC-20221226432

PATIENT
  Age: 40 Year
  Sex: Female
  Weight: 100 kg

DRUGS (1)
  1. SPRAVATO [Suspect]
     Active Substance: ESKETAMINE
     Indication: Product used for unknown indication

REACTIONS (5)
  - Device issue [Unknown]
  - Underdose [Unknown]
  - Dizziness [Unknown]
  - Vision blurred [Unknown]
  - Dissociation [Unknown]

NARRATIVE: CASE EVENT DATE: 20221208
